FAERS Safety Report 7387072-X (Version None)
Quarter: 2011Q1

REPORT INFORMATION
  Report Type: 
  Country: None (occurrence: None)
  Receive Date: 20110331
  Receipt Date: 20110325
  Transmission Date: 20110831
  Serious: Yes (Death, Life-Threatening)
  Sender: FDA-Public Use
  Company Number: US-MERCK-1103USA03473

PATIENT
  Sex: Female

DRUGS (1)
  1. JANUVIA [Suspect]
     Route: 048

REACTIONS (1)
  - PANCREATIC CARCINOMA [None]
